FAERS Safety Report 20659568 (Version 1)
Quarter: 2022Q1

REPORT INFORMATION
  Report Type: Spontaneous
  Country: CA (occurrence: CA)
  Receive Date: 20220331
  Receipt Date: 20220331
  Transmission Date: 20220423
  Serious: Yes (Other)
  Sender: FDA-Public Use
  Company Number: CA-PFIZER INC-202200468596

PATIENT
  Age: 35 Year
  Sex: Female

DRUGS (7)
  1. METHOTREXATE SODIUM [Suspect]
     Active Substance: METHOTREXATE SODIUM
     Dosage: 20 MG, WEEKLY
     Route: 030
  2. METHOTREXATE SODIUM [Suspect]
     Active Substance: METHOTREXATE SODIUM
     Dosage: 20 MG, WEEKLY
     Route: 058
  3. FOLIC ACID [Concomitant]
     Active Substance: FOLIC ACID
     Dosage: 5 MG, ONCE WEEKLY
  4. CLONAZEPAM [Concomitant]
     Active Substance: CLONAZEPAM
     Dosage: 0.5 MG, DAILY
     Route: 048
  5. VITAMIN D NOS [Concomitant]
     Active Substance: VITAMIN D NOS
  6. IRON [Concomitant]
     Active Substance: IRON
  7. CYMBALTA [Concomitant]
     Active Substance: DULOXETINE HYDROCHLORIDE
     Dosage: 60 MG, DAILY

REACTIONS (17)
  - Rheumatoid arthritis [Unknown]
  - Crohn^s disease [Unknown]
  - Sexual abuse [Unknown]
  - Faeces hard [Unknown]
  - Anal incontinence [Unknown]
  - Dyspepsia [Unknown]
  - Erythema [Unknown]
  - Emphysema [Unknown]
  - Lung opacity [Unknown]
  - Lung cyst [Unknown]
  - Heavy menstrual bleeding [Unknown]
  - Splenomegaly [Unknown]
  - Adrenal adenoma [Unknown]
  - Pulmonary mass [Unknown]
  - Injection site discomfort [Unknown]
  - Injection site pain [Unknown]
  - Off label use [Unknown]
